FAERS Safety Report 8934029 (Version 1)
Quarter: 2012Q4

REPORT INFORMATION
  Report Type: 
  Country: CN (occurrence: CN)
  Receive Date: 20121129
  Receipt Date: 20121129
  Transmission Date: 20130627
  Serious: Yes (Hospitalization, Other)
  Sender: FDA-Public Use
  Company Number: CN-MUTUAL PHARMACEUTICAL COMPANY, INC.-LVTM20120011

PATIENT
  Age: 2 Year
  Sex: Female

DRUGS (2)
  1. LEVETIRACETAM [Suspect]
     Indication: SEIZURES
     Route: 065
  2. LEVETIRACETAM [Suspect]
     Route: 065

REACTIONS (1)
  - Stevens-Johnson syndrome [Recovered/Resolved]
